FAERS Safety Report 8454223-5 (Version None)
Quarter: 2012Q2

REPORT INFORMATION
  Report Type: 
  Country: None (occurrence: None)
  Receive Date: 20120620
  Receipt Date: 20120614
  Transmission Date: 20120825
  Serious: Yes (Other)
  Sender: FDA-Public Use
  Company Number: US-FRI-1000031407

PATIENT
  Sex: Female

DRUGS (2)
  1. ULTRAM [Concomitant]
  2. VIIBRYD [Suspect]

REACTIONS (1)
  - CONVULSION [None]
